FAERS Safety Report 4690317-8 (Version None)
Quarter: 2005Q2

REPORT INFORMATION
  Report Type: 
  Country: None (occurrence: None)
  Receive Date: 20050615
  Receipt Date: 20050310
  Transmission Date: 20051028
  Serious: Yes (Hospitalization, Disabling)
  Sender: FDA-Public Use
  Company Number: US-MERCK-0503USA02055

PATIENT
  Age: 41 Year
  Sex: Male
  Weight: 89 kg

DRUGS (19)
  1. VIOXX [Suspect]
     Indication: CARPAL TUNNEL SYNDROME
     Route: 048
     Dates: start: 20030101, end: 20040101
  2. VIOXX [Suspect]
     Indication: TENDONITIS
     Route: 048
     Dates: start: 20030101, end: 20040101
  3. METOPROLOL [Concomitant]
     Route: 048
  4. IMDUR [Concomitant]
     Indication: ANGINA PECTORIS
     Route: 048
     Dates: start: 20010101
  5. NITROSTAT [Concomitant]
     Route: 048
  6. PROMETHAZINE [Concomitant]
     Route: 065
  7. AMILORIDE [Concomitant]
     Route: 065
  8. PREDNISONE [Concomitant]
     Route: 065
  9. AMBIEN [Concomitant]
     Route: 065
  10. FUROSEMIDE [Concomitant]
     Route: 065
  11. NITROQUICK [Concomitant]
     Route: 065
  12. LIPITOR [Concomitant]
     Indication: BLOOD CHOLESTEROL INCREASED
     Route: 048
     Dates: start: 20010101, end: 20040401
  13. PLAVIX [Concomitant]
     Indication: MYOCARDIAL INFARCTION
     Route: 048
     Dates: start: 20010101
  14. ACETAMINOPHEN AND PROPOXYPHENE NAPSYLATE [Concomitant]
     Route: 048
     Dates: start: 20020101
  15. TOPROL-XL [Concomitant]
     Indication: HYPERTENSION
     Route: 048
     Dates: start: 20030101, end: 20040416
  16. ATARAX [Concomitant]
     Indication: ANXIETY
     Route: 048
     Dates: start: 20010101
  17. ASPIRIN [Concomitant]
     Route: 048
  18. CRATAEGUS [Concomitant]
     Route: 048
  19. MEVACOR [Concomitant]
     Route: 048

REACTIONS (18)
  - ANGER [None]
  - ANXIETY [None]
  - CARDIAC DISORDER [None]
  - CHEST PAIN [None]
  - CORONARY ARTERY DISEASE [None]
  - CORONARY ARTERY STENOSIS [None]
  - DEPRESSION [None]
  - DERMATITIS CONTACT [None]
  - EJECTION FRACTION DECREASED [None]
  - INSOMNIA [None]
  - IRRITABILITY [None]
  - LACERATION [None]
  - MITRAL VALVE PROLAPSE [None]
  - MYALGIA [None]
  - MYOCARDIAL INFARCTION [None]
  - PEPTIC ULCER [None]
  - VASCULAR GRAFT OCCLUSION [None]
  - VENTRICULAR DYSFUNCTION [None]
